FAERS Safety Report 25425811 (Version 1)
Quarter: 2025Q2

REPORT INFORMATION
  Report Type: Report from Study
  Country: CH (occurrence: CH)
  Receive Date: 20250611
  Receipt Date: 20250611
  Transmission Date: 20250717
  Serious: Yes (Hospitalization, Other)
  Sender: ABBVIE
  Company Number: CH-ABBVIE-6314080

PATIENT
  Age: 81 Year
  Sex: Female
  Weight: 52 kg

DRUGS (21)
  1. CARBIDOPA\LEVODOPA [Suspect]
     Active Substance: CARBIDOPA\LEVODOPA
     Indication: Parkinson^s disease
     Route: 050
     Dates: start: 20211210
  2. CARBIDOPA\LEVODOPA [Suspect]
     Active Substance: CARBIDOPA\LEVODOPA
     Dates: start: 20250530
  3. ACETAMINOPHEN [Concomitant]
     Active Substance: ACETAMINOPHEN
     Indication: Product used for unknown indication
  4. HERBALS [Concomitant]
     Active Substance: HERBALS
     Indication: Product used for unknown indication
  5. Lactulosum [Concomitant]
     Indication: Product used for unknown indication
  6. AMIODARONE HYDROCHLORIDE [Concomitant]
     Active Substance: AMIODARONE HYDROCHLORIDE
     Indication: Arrhythmia
  7. Levothyroxinum Natricum [Concomitant]
     Indication: Product used for unknown indication
  8. Clopidogrelum (Plavix) [Concomitant]
     Indication: Product used for unknown indication
  9. ALENDRONATE [Concomitant]
     Active Substance: ALENDRONATE SODIUM
     Indication: Osteoporosis
     Dates: start: 201106
  10. SERTRALINE [Concomitant]
     Active Substance: SERTRALINE HYDROCHLORIDE
     Indication: Product used for unknown indication
  11. TORSEMIDE [Concomitant]
     Active Substance: TORSEMIDE
     Indication: Product used for unknown indication
  12. AMIODARONE [Concomitant]
     Active Substance: AMIODARONE
     Indication: Arrhythmia
  13. CHOLECALCIFEROL [Concomitant]
     Active Substance: CHOLECALCIFEROL
     Indication: Product used for unknown indication
  14. Clomethiazolum (Distraneurin) [Concomitant]
     Indication: Product used for unknown indication
  15. Clonazepam (Rivotril) [Concomitant]
     Indication: Product used for unknown indication
  16. GABAPENTIN [Concomitant]
     Active Substance: GABAPENTIN
     Indication: Product used for unknown indication
  17. RIVASTIGMINE [Concomitant]
     Active Substance: RIVASTIGMINE
     Indication: Product used for unknown indication
     Dates: start: 20250429
  18. Ezetimibe-Atorvastatin Sandoz [Concomitant]
     Indication: Product used for unknown indication
  19. prednisone (Prednisone Streuli) [Concomitant]
     Indication: Product used for unknown indication
  20. Metoprololi succinas (Meto-Zerok) [Concomitant]
     Indication: Product used for unknown indication
  21. Pantoprazole (Pantozol) [Concomitant]
     Indication: Product used for unknown indication

REACTIONS (35)
  - Cognitive disorder [Not Recovered/Not Resolved]
  - Asthenia [Not Recovered/Not Resolved]
  - Rapid eye movement sleep behaviour disorder [Unknown]
  - Xerophthalmia [Unknown]
  - Polymyalgia rheumatica [Unknown]
  - Disorientation [Not Recovered/Not Resolved]
  - Ventricular tachycardia [Unknown]
  - Dyskinesia [Not Recovered/Not Resolved]
  - Dysphonia [Not Recovered/Not Resolved]
  - Hallucination [Not Recovered/Not Resolved]
  - Parkinson^s disease [Unknown]
  - Atrial fibrillation [Unknown]
  - Balance disorder [Not Recovered/Not Resolved]
  - Cardiac arrest [Unknown]
  - Myocardial ischaemia [Unknown]
  - Bradycardia [Unknown]
  - Device dislocation [Unknown]
  - Dyslipidaemia [Unknown]
  - Physiotherapy [Not Recovered/Not Resolved]
  - Tendon calcification [Unknown]
  - Confusional state [Not Recovered/Not Resolved]
  - Musculoskeletal disorder [Not Recovered/Not Resolved]
  - Loss of personal independence in daily activities [Not Recovered/Not Resolved]
  - Muscle rigidity [Not Recovered/Not Resolved]
  - Fatigue [Not Recovered/Not Resolved]
  - Bradykinesia [Not Recovered/Not Resolved]
  - Disorientation [Not Recovered/Not Resolved]
  - Sinus node dysfunction [Unknown]
  - Tremor [Not Recovered/Not Resolved]
  - Balance disorder [Not Recovered/Not Resolved]
  - Physical deconditioning [Not Recovered/Not Resolved]
  - Movement disorder [Not Recovered/Not Resolved]
  - Age-related macular degeneration [Unknown]
  - Weight decreased [Not Recovered/Not Resolved]
  - Cardiac arrest [Unknown]

NARRATIVE: CASE EVENT DATE: 20230101
